FAERS Safety Report 16424852 (Version 3)
Quarter: 2019Q3

REPORT INFORMATION
  Report Type: Report from Study
  Country: None (occurrence: AU)
  Receive Date: 20190613
  Receipt Date: 20190709
  Transmission Date: 20191004
  Serious: Yes (Hospitalization)
  Sender: FDA-Public Use
  Company Number: AU-ABBVIE-19S-008-2818770-00

PATIENT
  Age: 72 Year
  Sex: Male

DRUGS (1)
  1. DUODOPA [Suspect]
     Active Substance: CARBIDOPA\LEVODOPA
     Indication: PARKINSON^S DISEASE
     Dosage: 100ML GEL CASSETTE 16HRLY INFUSION
     Route: 050
     Dates: start: 20170228

REACTIONS (6)
  - Device dislocation [Unknown]
  - Dyspnoea [Unknown]
  - Incorrect route of product administration [Not Recovered/Not Resolved]
  - Device occlusion [Unknown]
  - Pleural effusion [Unknown]
  - Device leakage [Unknown]

NARRATIVE: CASE EVENT DATE: 201906
